FAERS Safety Report 20559837 (Version 1)
Quarter: 2022Q1

REPORT INFORMATION
  Report Type: Report from Study
  Country: IN (occurrence: IN)
  Receive Date: 20220307
  Receipt Date: 20220307
  Transmission Date: 20220423
  Serious: Yes (Other)
  Sender: FDA-Public Use
  Company Number: IN-NOVARTISPH-NVSC2021IN246096

PATIENT
  Age: 24 Year
  Sex: Male

DRUGS (2)
  1. MIDOSTAURIN [Suspect]
     Active Substance: MIDOSTAURIN
     Indication: Acute myeloid leukaemia
     Dosage: 50 MG, BID
     Route: 065
     Dates: start: 20210910, end: 202112
  2. MIDOSTAURIN [Suspect]
     Active Substance: MIDOSTAURIN
     Dosage: 5 MG, BID
     Route: 065
     Dates: start: 202202

REACTIONS (1)
  - Full blood count decreased [Recovered/Resolved]

NARRATIVE: CASE EVENT DATE: 20210901
